FAERS Safety Report 6722133-7 (Version None)
Quarter: 2010Q2

REPORT INFORMATION
  Report Type: 
  Country: None (occurrence: None)
  Receive Date: 20100512
  Receipt Date: 20100428
  Transmission Date: 20101027
  Serious: Yes (Other)
  Sender: FDA-Public Use
  Company Number: US-ELI_LILLY_AND_COMPANY-US200910006904

PATIENT
  Age: 60 Year
  Sex: Male

DRUGS (3)
  1. FORTEO [Suspect]
     Indication: OSTEOPOROSIS
  2. FORTEO [Suspect]
  3. COUMADIN [Concomitant]

REACTIONS (4)
  - HAEMATURIA [None]
  - RETINAL HAEMORRHAGE [None]
  - SPINAL COMPRESSION FRACTURE [None]
  - SPINAL FUSION SURGERY [None]
